FAERS Safety Report 8925547 (Version 2)
Quarter: 2014Q2

REPORT INFORMATION
  Report Type: Spontaneous
  Country: US (occurrence: US)
  Receive Date: 20121126
  Receipt Date: 20140624
  Transmission Date: 20141212
  Serious: Yes (Other)
  Sender: FDA-Public Use
  Company Number: US-BAYER-2012-120036

PATIENT
  Age: 31 Year
  Sex: Female

DRUGS (3)
  1. YASMIN [Suspect]
     Dosage: UNK
     Route: 048
     Dates: start: 200804, end: 200810
  2. CLARITIN [Concomitant]
  3. ALBUTEROL [Concomitant]

REACTIONS (2)
  - Thrombosis [None]
  - Thrombophlebitis superficial [None]
